FAERS Safety Report 9858110 (Version 2)
Quarter: 2014Q1

REPORT INFORMATION
  Report Type: Spontaneous
  Country: IT (occurrence: IT)
  Receive Date: 20140131
  Receipt Date: 20140327
  Transmission Date: 20141002
  Serious: Yes (Hospitalization)
  Sender: FDA-Public Use
  Company Number: IT-JNJFOC-20140114940

PATIENT
  Age: 30 Year
  Sex: Female

DRUGS (5)
  1. REMICADE [Suspect]
     Indication: COLITIS ULCERATIVE
     Dosage: ELEVENTH CYCLE
     Route: 042
     Dates: start: 20100326, end: 20110411
  2. AZATHIOPRINE [Suspect]
     Indication: COLITIS ULCERATIVE
     Route: 048
     Dates: end: 20090407
  3. AZATHIOPRINE [Suspect]
     Indication: COLITIS ULCERATIVE
     Route: 048
     Dates: start: 20090721, end: 20110422
  4. DOBETIN [Concomitant]
     Dosage: 1 VIAL PER MONTH
     Route: 030
  5. LACTIC ACID [Concomitant]
     Dosage: 1 TABLET DAILY FOR 4 WEEKS, EVERY 2 MONTHS
     Route: 065

REACTIONS (2)
  - Cytomegalovirus infection [Recovered/Resolved]
  - Pancytopenia [Recovered/Resolved]
